FAERS Safety Report 23191298 (Version 4)
Quarter: 2024Q1

REPORT INFORMATION
  Report Type: Spontaneous
  Country: US (occurrence: US)
  Receive Date: 20231116
  Receipt Date: 20240308
  Transmission Date: 20240410
  Serious: No
  Sender: FDA-Public Use
  Company Number: US-PFIZER INC-202300359521

PATIENT
  Age: 14 Year
  Sex: Male
  Weight: 38.1 kg

DRUGS (1)
  1. GENOTROPIN [Suspect]
     Active Substance: SOMATROPIN
     Indication: Growth hormone deficiency
     Dosage: 1.1 MG, DAILY

REACTIONS (3)
  - Incorrect dose administered by device [Unknown]
  - Device leakage [Unknown]
  - Product prescribing error [Unknown]
